FAERS Safety Report 25723836 (Version 2)
Quarter: 2025Q3

REPORT INFORMATION
  Report Type: Spontaneous
  Country: EU (occurrence: EU)
  Receive Date: 20250825
  Receipt Date: 20250911
  Transmission Date: 20251020
  Serious: Yes (Hospitalization)
  Sender: MERCK SHARP & DOHME LLC
  Company Number: EU-SA-2017SA131079

PATIENT
  Age: 39 Year
  Sex: Female

DRUGS (6)
  1. CASPOFUNGIN [Suspect]
     Active Substance: CASPOFUNGIN
     Indication: Bronchopulmonary aspergillosis
  2. ACYCLOVIR [Suspect]
     Active Substance: ACYCLOVIR
  3. METHIMAZOLE [Concomitant]
     Active Substance: METHIMAZOLE
     Indication: Graves^ disease
  4. PIPERACILLIN AND TAZOBACTAM [Suspect]
     Active Substance: PIPERACILLIN SODIUM\TAZOBACTAM SODIUM
     Indication: Tonsillitis bacterial
  5. VANCOMYCIN [Suspect]
     Active Substance: VANCOMYCIN
  6. LAMIVUDINE [Suspect]
     Active Substance: LAMIVUDINE

REACTIONS (1)
  - Drug ineffective [Not Recovered/Not Resolved]
